FAERS Safety Report 5711117-3 (Version None)
Quarter: 2008Q2

REPORT INFORMATION
  Report Type: 
  Country: None (occurrence: None)
  Receive Date: 20080417
  Receipt Date: 20080417
  Transmission Date: 20081010
  Serious: Yes (Other)
  Sender: FDA-Public Use
  Company Number: None

PATIENT
  Age: 12 Year
  Sex: Female
  Weight: 56.6996 kg

DRUGS (1)
  1. CONCERTA [Suspect]
     Indication: ATTENTION DEFICIT/HYPERACTIVITY DISORDER
     Dosage: 1 18MG TABLET ONCE DAILY AM PO
     Route: 048
     Dates: start: 20080411, end: 20080416

REACTIONS (8)
  - AGGRESSION [None]
  - ANXIETY [None]
  - DEPRESSION [None]
  - INSOMNIA [None]
  - IRRITABILITY [None]
  - MOOD ALTERED [None]
  - ORAL INTAKE REDUCED [None]
  - TENSION [None]
